FAERS Safety Report 17839423 (Version 2)
Quarter: 2020Q2

REPORT INFORMATION
  Report Type: Spontaneous
  Country: ES (occurrence: ES)
  Receive Date: 20200529
  Receipt Date: 20200605
  Transmission Date: 20200714
  Serious: Yes (Other)
  Sender: FDA-Public Use
  Company Number: ES-ALLERGAN-2020214US

PATIENT
  Sex: Male

DRUGS (5)
  1. ESOMEPRAZOLE. [Concomitant]
     Active Substance: ESOMEPRAZOLE MAGNESIUM
     Indication: PROPHYLAXIS
     Dosage: UNK, PRN
     Route: 048
  2. FINASTERIDE. [Concomitant]
     Active Substance: FINASTERIDE
     Indication: PROSTATIC DISORDER
     Dosage: 5 MG, QPM
     Route: 048
  3. SILODYX [Concomitant]
     Active Substance: SILODOSIN
     Indication: PROSTATIC DISORDER
     Dosage: 8 MG, QD
     Route: 048
  4. ENALAPRIL [Concomitant]
     Active Substance: ENALAPRIL
     Dosage: UNK, QAM
  5. LUMIGAN [Suspect]
     Active Substance: BIMATOPROST
     Indication: GLAUCOMA
     Dosage: 2 GTT, QPM
     Route: 047
     Dates: start: 201905, end: 20200501

REACTIONS (5)
  - Vision blurred [Recovering/Resolving]
  - Diplopia [Recovering/Resolving]
  - Visual impairment [Recovered/Resolved]
  - Limb discomfort [Unknown]
  - Blindness transient [Recovering/Resolving]
